FAERS Safety Report 18228348 (Version 14)
Quarter: 2022Q2

REPORT INFORMATION
  Report Type: Report from Study
  Country: AR (occurrence: AR)
  Receive Date: 20200903
  Receipt Date: 20220404
  Transmission Date: 20220720
  Serious: Yes (Hospitalization, Other)
  Sender: FDA-Public Use
  Company Number: NVSC2020AR045338

PATIENT
  Age: 40 Year
  Sex: Male

DRUGS (5)
  1. COSENTYX [Suspect]
     Active Substance: SECUKINUMAB
     Indication: Ankylosing spondylitis
     Dosage: 150 MG, QMO
     Route: 058
     Dates: start: 20180918, end: 202001
  2. COSENTYX [Suspect]
     Active Substance: SECUKINUMAB
     Indication: Axial spondyloarthritis
     Dosage: 300 MG, QMO
     Route: 058
     Dates: start: 20190918
  3. COSENTYX [Suspect]
     Active Substance: SECUKINUMAB
     Indication: Psoriasis
     Dosage: 300 MG, QMO
     Route: 058
  4. COSENTYX [Suspect]
     Active Substance: SECUKINUMAB
     Dosage: 300 MG, UNKNOWN
     Route: 065
  5. METHOTREXATE (METHOTREXATE SODIUM) [Suspect]
     Active Substance: METHOTREXATE SODIUM
     Indication: Product used for unknown indication
     Dosage: UNK
     Route: 065

REACTIONS (25)
  - COVID-19 [Recovered/Resolved]
  - Psoriasis [Recovered/Resolved]
  - Influenza [Unknown]
  - Psoriasis [Unknown]
  - Dizziness [Unknown]
  - Arthralgia [Unknown]
  - Pain [Unknown]
  - Condition aggravated [Not Recovered/Not Resolved]
  - Melanocytic naevus [Unknown]
  - Arthropathy [Not Recovered/Not Resolved]
  - Joint swelling [Not Recovered/Not Resolved]
  - Joint stiffness [Not Recovered/Not Resolved]
  - Movement disorder [Not Recovered/Not Resolved]
  - Insomnia [Not Recovered/Not Resolved]
  - Ephelides [Unknown]
  - Rash [Not Recovered/Not Resolved]
  - Stress [Unknown]
  - Anxiety [Unknown]
  - Product availability issue [Unknown]
  - Myalgia [Not Recovered/Not Resolved]
  - Muscle contracture [Unknown]
  - Tendon pain [Unknown]
  - Cyst [Unknown]
  - Product use issue [Unknown]
  - Therapeutic product effect incomplete [Unknown]

NARRATIVE: CASE EVENT DATE: 20200101
